FAERS Safety Report 17510276 (Version 1)
Quarter: 2020Q1

REPORT INFORMATION
  Report Type: Spontaneous
  Country: US (occurrence: US)
  Receive Date: 20200306
  Receipt Date: 20200306
  Transmission Date: 20200409
  Serious: Yes (Hospitalization)
  Sender: FDA-Public Use
  Company Number: None

PATIENT
  Age: 72 Year
  Sex: Male
  Weight: 73 kg

DRUGS (17)
  1. VENETOCLAX 10/50/100MG DP [Concomitant]
     Dates: start: 20200226
  2. ACETAMINOPHEN 650MG [Concomitant]
     Dates: start: 20200304, end: 20200304
  3. FLONASE NS [Concomitant]
  4. FEXOFENADINE 180MG [Concomitant]
     Active Substance: FEXOFENADINE HYDROCHLORIDE
  5. OBINUTUZUMAB. [Suspect]
     Active Substance: OBINUTUZUMAB
     Indication: CHRONIC LYMPHOCYTIC LEUKAEMIA
     Route: 041
     Dates: start: 20200304, end: 20200304
  6. DIPHENHYDRAMINE 50MG PO [Concomitant]
     Dates: start: 20200304, end: 20200304
  7. DULOXETINE 30MG DR [Concomitant]
  8. ALLOPURINOL 300MG [Concomitant]
     Active Substance: ALLOPURINOL
  9. RIFAMPIN 300MG [Concomitant]
     Active Substance: RIFAMPIN SODIUM
  10. MULTIVITAMIN [Concomitant]
     Active Substance: VITAMINS
  11. ASCORBIC ACID 500MG [Concomitant]
  12. ASPIRIN 81MG [Concomitant]
     Active Substance: ASPIRIN
  13. LANSOPRAZOLE 30MG [Concomitant]
     Active Substance: LANSOPRAZOLE
  14. CEFTRAIXONE 2G [Concomitant]
     Dates: start: 20200304, end: 20200304
  15. DEXAMETHSONE 20MG [Concomitant]
     Dates: start: 20200304, end: 20200304
  16. ENOXAPARIN 60MG [Concomitant]
     Dates: start: 20200225
  17. ETHAMBUTOL 400MG [Concomitant]

REACTIONS (9)
  - White blood cell count abnormal [None]
  - Platelet count decreased [None]
  - Adverse drug reaction [None]
  - Tachycardia [None]
  - Feeling hot [None]
  - Hypoxia [None]
  - Haematocrit decreased [None]
  - Flushing [None]
  - Vomiting [None]

NARRATIVE: CASE EVENT DATE: 20200304
